FAERS Safety Report 26100682 (Version 1)
Quarter: 2025Q4

REPORT INFORMATION
  Report Type: Report from Study
  Country: CA (occurrence: CA)
  Receive Date: 20251128
  Receipt Date: 20251128
  Transmission Date: 20260118
  Serious: Yes (Other)
  Sender: TEVA
  Company Number: CA-TEVA-VS-3396655

PATIENT
  Age: 64 Year
  Sex: Female

DRUGS (3)
  1. CEPHALEXIN [Suspect]
     Active Substance: CEPHALEXIN
     Indication: Arthropod bite
     Route: 065
  2. STELARA [Suspect]
     Active Substance: USTEKINUMAB
     Indication: Colitis ulcerative
     Dosage: DOSE FORM: SOLUTION SUBCUTANEOUS
     Route: 058
  3. STELARA [Suspect]
     Active Substance: USTEKINUMAB
     Indication: Colitis ulcerative
     Route: 058

REACTIONS (5)
  - Crohn^s disease [Recovered/Resolved]
  - Swelling [Recovered/Resolved]
  - Pain [Recovered/Resolved]
  - Arthropod bite [Recovered/Resolved]
  - Erythema [Recovered/Resolved]
